FAERS Safety Report 6143342-4 (Version None)
Quarter: 2009Q2

REPORT INFORMATION
  Report Type: 
  Country: None (occurrence: None)
  Receive Date: 20090403
  Receipt Date: 20090331
  Transmission Date: 20091009
  Serious: Yes (Hospitalization)
  Sender: FDA-Public Use
  Company Number: B0567727A

PATIENT
  Sex: Male
  Weight: 57 kg

DRUGS (5)
  1. VALTREX [Suspect]
     Indication: HERPES ZOSTER
     Dosage: 1000MG THREE TIMES PER DAY
     Route: 048
     Dates: start: 20090321, end: 20090323
  2. ACYCLOVIR [Concomitant]
     Route: 042
     Dates: start: 20090323, end: 20090325
  3. NOVORAPID [Concomitant]
     Indication: DIABETES MELLITUS
     Route: 058
  4. CHINESE MEDICINE [Concomitant]
     Indication: ANOREXIA
     Route: 048
     Dates: start: 20090323, end: 20090325
  5. FAMVIR [Concomitant]
     Indication: HERPES ZOSTER
     Route: 048
     Dates: start: 20090323, end: 20090325

REACTIONS (3)
  - ALTERED STATE OF CONSCIOUSNESS [None]
  - DECREASED APPETITE [None]
  - ENCEPHALOPATHY [None]
